FAERS Safety Report 6747050-8 (Version None)
Quarter: 2010Q2

REPORT INFORMATION
  Report Type: 
  Country: None (occurrence: None)
  Receive Date: 20100528
  Receipt Date: 20100521
  Transmission Date: 20101027
  Serious: Yes (Other)
  Sender: FDA-Public Use
  Company Number: US-ROCHE-705402

PATIENT
  Sex: Male
  Weight: 70.3 kg

DRUGS (1)
  1. CAPECITABINE [Suspect]
     Indication: BREAST CANCER
     Dosage: STRENGTH: 500MG AND 150 MG DOSING AMOUNT: 500MG X 2 PLUS 150 MG X 5
     Route: 048
     Dates: start: 20090921

REACTIONS (1)
  - CONVULSION [None]
